FAERS Safety Report 8583689 (Version 10)
Quarter: 2015Q2

REPORT INFORMATION
  Report Type: Spontaneous
  Country: US (occurrence: US)
  Receive Date: 20120529
  Receipt Date: 20150616
  Transmission Date: 20150821
  Serious: Yes (Other)
  Sender: FDA-Public Use
  Company Number: US-GLAXOSMITHKLINE-A0978585A

PATIENT
  Sex: Female

DRUGS (10)
  1. LAMOTRIGINE. [Suspect]
     Active Substance: LAMOTRIGINE
     Dosage: 50 MG, UNK
  2. LAMICTAL XR [Suspect]
     Active Substance: LAMOTRIGINE
     Dosage: 50 MG, UNK
  3. LAMICTAL XR [Suspect]
     Active Substance: LAMOTRIGINE
     Indication: SEIZURE
     Dosage: 200MG;150 MG PER DAY;50 MG TABLETS SINCE 01 DEC 2013, UNKNOWN DOSING
     Route: 048
     Dates: start: 20120607
  4. SEROQUEL [Concomitant]
     Active Substance: QUETIAPINE FUMARATE
  5. DIVALPROEX [Suspect]
     Active Substance: DIVALPROEX SODIUM
     Indication: PRODUCT USED FOR UNKNOWN INDICATION
     Route: 065
  6. DEPAKOTE [Concomitant]
     Active Substance: DIVALPROEX SODIUM
  7. LAMICTAL [Suspect]
     Active Substance: LAMOTRIGINE
     Indication: SEIZURE
     Dosage: 50 MG (3 TABS)FU START DATE 30 JUNE 2009
     Route: 048
     Dates: start: 20090630
  8. LAMICTAL [Suspect]
     Active Substance: LAMOTRIGINE
     Indication: PARTIAL SEIZURES
  9. LAMOTRIGINE. [Suspect]
     Active Substance: LAMOTRIGINE
     Indication: SEIZURE
     Dosage: 200 MG
     Route: 048
     Dates: start: 2013
  10. DEPAKOTE ER [Concomitant]
     Active Substance: DIVALPROEX SODIUM

REACTIONS (32)
  - Contusion [Unknown]
  - Muscular weakness [Recovered/Resolved]
  - Tooth disorder [Unknown]
  - Adverse event [Unknown]
  - Dizziness [Unknown]
  - Dyspnoea [Unknown]
  - Overdose [Unknown]
  - Noninfective gingivitis [Unknown]
  - Balance disorder [Not Recovered/Not Resolved]
  - Drug administration error [Unknown]
  - Joint injury [Unknown]
  - Chest pain [Unknown]
  - Therapy cessation [Unknown]
  - Fall [Unknown]
  - Head injury [Unknown]
  - Pain [Unknown]
  - Tooth fracture [Unknown]
  - Drug ineffective [Unknown]
  - Disorientation [Unknown]
  - Disability [Unknown]
  - Impaired driving ability [Unknown]
  - Seizure [Not Recovered/Not Resolved]
  - Abasia [Unknown]
  - Gait disturbance [Unknown]
  - Skin discolouration [Unknown]
  - Blood iron decreased [Unknown]
  - Gingival bleeding [Unknown]
  - Partial seizures [Unknown]
  - Gingivitis [Unknown]
  - Gingival swelling [Unknown]
  - Tooth extraction [Unknown]
  - Bone disorder [Unknown]
